FAERS Safety Report 8464648-X (Version None)
Quarter: 2012Q2

REPORT INFORMATION
  Report Type: 
  Country: None (occurrence: None)
  Receive Date: 20120620
  Receipt Date: 20120620
  Transmission Date: 20120825
  Serious: Yes (Hospitalization)
  Sender: FDA-Public Use
  Company Number: None

PATIENT
  Sex: Male
  Weight: 95 kg

DRUGS (9)
  1. FILGRASTIM [Concomitant]
  2. ACETAMINOPHEN/HYDROCODONE BITARTRATE [Concomitant]
  3. ETOPOSIDE [Suspect]
     Dosage: 210 ONCE PER DAY X 3 D IV BOLUS
     Route: 040
     Dates: start: 20120608, end: 20120610
  4. LANTUS [Concomitant]
  5. ALLOPURINOL [Concomitant]
  6. CYCLOPHOSPHAMIDE [Suspect]
     Indication: CHEMOTHERAPY
     Dosage: 1570 ONCE IV BOLUS
     Route: 040
     Dates: start: 20120608, end: 20120608
  7. IBUPROFEN [Concomitant]
  8. ATIVAN [Concomitant]
  9. LACTULOSE [Concomitant]

REACTIONS (5)
  - DIARRHOEA [None]
  - PRODUCTIVE COUGH [None]
  - PNEUMONIA [None]
  - DYSPNOEA [None]
  - FEBRILE NEUTROPENIA [None]
